FAERS Safety Report 8808015 (Version 1)
Quarter: 2012Q4

REPORT INFORMATION
  Report Type: 
  Country: US (occurrence: US)
  Receive Date: 20120925
  Receipt Date: 20120925
  Transmission Date: 20130627
  Serious: Yes (Death, Hospitalization, Other)
  Sender: FDA-Public Use
  Company Number: US-JNJFOC-20120815004

PATIENT
  Age: 88 Year
  Sex: Female
  Weight: 44 kg

DRUGS (6)
  1. XARELTO [Suspect]
     Indication: CEREBROVASCULAR ACCIDENT PROPHYLAXIS
     Route: 065
     Dates: start: 20120711
  2. XARELTO [Suspect]
     Indication: CEREBROVASCULAR ACCIDENT PROPHYLAXIS
     Route: 065
     Dates: start: 20120725, end: 20120817
  3. XARELTO [Suspect]
     Indication: ATRIAL FIBRILLATION
     Route: 065
     Dates: start: 20120725, end: 20120817
  4. XARELTO [Suspect]
     Indication: ATRIAL FIBRILLATION
     Route: 065
     Dates: start: 20120711
  5. MELOXICAM [Concomitant]
  6. AMIODARONE [Concomitant]
     Dates: start: 20120813

REACTIONS (5)
  - Gastrointestinal haemorrhage [Unknown]
  - Death [Fatal]
  - Hypotension [Unknown]
  - Oxygen saturation decreased [Unknown]
  - Cardiac arrest [Unknown]
